FAERS Safety Report 9114386 (Version 2)
Quarter: 2013Q1

REPORT INFORMATION
  Report Type: Spontaneous
  Country: AU (occurrence: AU)
  Receive Date: 20130209
  Receipt Date: 20130328
  Transmission Date: 20140127
  Serious: Yes (Hospitalization, Disabling)
  Sender: FDA-Public Use
  Company Number: AU-B.I. PHARMACEUTICALS,INC./RIDGEFIELD-2013-AU-00122AU

PATIENT
  Age: 81 Year
  Sex: Female
  Weight: 89 kg

DRUGS (8)
  1. PRADAXA [Suspect]
     Indication: ATRIAL FIBRILLATION
     Dosage: 220 MG
     Dates: start: 201106
  2. SINEMET [Concomitant]
  3. MIRTAZAPINE [Concomitant]
  4. PANTOPRAZOLE [Concomitant]
  5. PRAVASTATIN [Concomitant]
  6. AMIODARONE [Concomitant]
  7. DILTIAZEM [Concomitant]
  8. IRBESARTAN HCT [Concomitant]

REACTIONS (2)
  - Cerebrovascular accident [Not Recovered/Not Resolved]
  - Hemiparesis [Not Recovered/Not Resolved]
